FAERS Safety Report 17989441 (Version 1)
Quarter: 2020Q3

REPORT INFORMATION
  Report Type: Spontaneous
  Country: CN (occurrence: CN)
  Receive Date: 20200707
  Receipt Date: 20200707
  Transmission Date: 20201103
  Serious: Yes (Hospitalization, Other)
  Sender: FDA-Public Use
  Company Number: CN-PFIZER INC-2020256386

PATIENT
  Age: 48 Year
  Sex: Male
  Weight: 59 kg

DRUGS (6)
  1. CYTARABINE HYDROCHLORIDE [Suspect]
     Active Substance: CYTARABINE HYDROCHLORIDE
     Indication: ACUTE MYELOID LEUKAEMIA
     Dosage: 0.05 G, 1X/DAY
     Route: 037
     Dates: start: 20200612, end: 20200612
  2. CYTOSAR [Suspect]
     Active Substance: CYTARABINE
     Indication: ACUTE MYELOID LEUKAEMIA
     Dosage: 5 G, 2X/DAY (EVERY 12 HRS/Q12H, D1, 3, 5)
     Dates: start: 20200611, end: 20200615
  3. SODIUM CHLORIDE. [Concomitant]
     Active Substance: SODIUM CHLORIDE
     Indication: VEHICLE SOLUTION USE
     Dosage: 10 ML, 1X/DAY
     Route: 037
     Dates: start: 20200612, end: 20200612
  4. DEXAMETHASONE SODIUM PHOSPHATE. [Concomitant]
     Active Substance: DEXAMETHASONE SODIUM PHOSPHATE
     Indication: ACUTE MYELOID LEUKAEMIA
     Dosage: 10 MG, 1X/DAY
     Route: 037
     Dates: start: 20200612, end: 20200612
  5. SODIUM CHLORIDE. [Concomitant]
     Active Substance: SODIUM CHLORIDE
     Indication: VEHICLE SOLUTION USE
     Dosage: 500 ML, 2X/DAY
     Dates: start: 20200611, end: 20200615
  6. METHOTREXATE. [Suspect]
     Active Substance: METHOTREXATE
     Indication: ACUTE MYELOID LEUKAEMIA
     Dosage: 10 MG, 1X/DAY
     Route: 037
     Dates: start: 20200612, end: 20200612

REACTIONS (2)
  - Dizziness [Recovering/Resolving]
  - Musculoskeletal stiffness [Recovering/Resolving]

NARRATIVE: CASE EVENT DATE: 20200616
